FAERS Safety Report 14434562 (Version 1)
Quarter: 2018Q1

REPORT INFORMATION
  Report Type: Spontaneous
  Country: US (occurrence: US)
  Receive Date: 20180124
  Receipt Date: 20180124
  Transmission Date: 20180509
  Serious: Yes (Hospitalization, Other)
  Sender: FDA-Public Use
  Company Number: US-ASTRAZENECA-2018SE08196

PATIENT
  Age: 764 Month
  Sex: Male
  Weight: 68 kg

DRUGS (2)
  1. SYMBICORT [Suspect]
     Active Substance: BUDESONIDE\FORMOTEROL FUMARATE DIHYDRATE
     Indication: CHRONIC OBSTRUCTIVE PULMONARY DISEASE
     Dosage: TWO TIMES A DAY
     Route: 055
     Dates: start: 201706
  2. BUPROPION. [Concomitant]
     Active Substance: BUPROPION
     Indication: ADJUVANT THERAPY
     Dosage: UNKNOWN
     Route: 055

REACTIONS (9)
  - Diabetes mellitus [Unknown]
  - Condition aggravated [Unknown]
  - Bronchitis [Recovering/Resolving]
  - Pericardial effusion [Recovering/Resolving]
  - Pneumonia [Unknown]
  - Cardiac disorder [Recovering/Resolving]
  - Lung disorder [Recovering/Resolving]
  - Sepsis [Unknown]
  - Drug dose omission [Unknown]

NARRATIVE: CASE EVENT DATE: 201706
